FAERS Safety Report 4981225-3 (Version None)
Quarter: 2006Q1

REPORT INFORMATION
  Report Type: 
  Country: None (occurrence: None)
  Receive Date: 20060228
  Receipt Date: 20051216
  Transmission Date: 20060701
  Serious: No
  Sender: FDA-Public Use
  Company Number: 2005-0009037

PATIENT
  Sex: Male

DRUGS (3)
  1. TRUVADA [Suspect]
     Indication: HIV INFECTION
     Dates: start: 20041201
  2. EMTRIVA [Suspect]
     Indication: HIV INFECTION
     Dates: start: 20040421, end: 20041101
  3. VIREAD [Suspect]
     Indication: HIV INFECTION
     Dates: start: 20040421, end: 20041101

REACTIONS (1)
  - BLOOD HIV RNA INCREASED [None]
